FAERS Safety Report 10397950 (Version 1)
Quarter: 2014Q3

REPORT INFORMATION
  Report Type: Spontaneous
  Country: US (occurrence: US)
  Receive Date: 20140821
  Receipt Date: 20140821
  Transmission Date: 20150326
  Serious: No
  Sender: FDA-Public Use
  Company Number: US-AMGEN-USASP2014062622

PATIENT
  Age: 65 Year
  Sex: Female

DRUGS (2)
  1. ENBREL [Suspect]
     Active Substance: ETANERCEPT
     Indication: RHEUMATOID ARTHRITIS
     Dosage: 50 MG, QWK
     Route: 065
     Dates: start: 2010
  2. LISINOPRIL. [Concomitant]
     Active Substance: LISINOPRIL
     Indication: HYPERTENSION
     Dosage: UNK

REACTIONS (5)
  - Sensory disturbance [Unknown]
  - Pruritus generalised [Unknown]
  - Injection site rash [Unknown]
  - Feeling hot [Unknown]
  - Immediate post-injection reaction [Unknown]

NARRATIVE: CASE EVENT DATE: 201407
